FAERS Safety Report 25884130 (Version 2)
Quarter: 2025Q4

REPORT INFORMATION
  Report Type: Spontaneous
  Country: CO (occurrence: CO)
  Receive Date: 20251006
  Receipt Date: 20251008
  Transmission Date: 20260117
  Serious: Yes (Other)
  Sender: PFIZER
  Company Number: CO-PFIZER INC-PV202500117408

PATIENT
  Age: 3 Decade
  Sex: Male

DRUGS (6)
  1. POLYMYXIN B [Suspect]
     Active Substance: POLYMYXIN B
     Indication: Osteomyelitis
     Dosage: UNK
  2. POLYMYXIN B [Suspect]
     Active Substance: POLYMYXIN B
     Indication: Pseudomonas infection
  3. MEROPENEM [Concomitant]
     Active Substance: MEROPENEM
     Indication: Osteomyelitis
     Dosage: UNK
  4. MEROPENEM [Concomitant]
     Active Substance: MEROPENEM
     Indication: Pseudomonas infection
  5. VITAMIN C [Concomitant]
     Active Substance: ASCORBIC ACID
     Indication: Osteomyelitis
     Dosage: UNK
  6. VITAMIN C [Concomitant]
     Active Substance: ASCORBIC ACID
     Indication: Pseudomonas infection

REACTIONS (1)
  - Pseudo-Bartter syndrome [Recovered/Resolved]
